FAERS Safety Report 17701688 (Version 1)
Quarter: 2020Q2

REPORT INFORMATION
  Report Type: Spontaneous
  Country: US (occurrence: US)
  Receive Date: 20200424
  Receipt Date: 20200424
  Transmission Date: 20200714
  Serious: No
  Sender: FDA-Public Use
  Company Number: US-TEVA-2020-US-1224963

PATIENT
  Sex: Female

DRUGS (7)
  1. ACTIQ [Suspect]
     Active Substance: FENTANYL CITRATE
     Indication: BREAKTHROUGH PAIN
     Dosage: 1200 MICROGRAM DAILY; HAS TAKEN BOTH THE 200MCG AND 800MCG DOSE IN THE PAST
     Dates: start: 2004
  2. ACTIQ [Suspect]
     Active Substance: FENTANYL CITRATE
     Indication: BRAIN NEOPLASM
  3. ACTIQ [Suspect]
     Active Substance: FENTANYL CITRATE
     Indication: ANKLE OPERATION
  4. METHADONE [Concomitant]
     Active Substance: METHADONE HYDROCHLORIDE
  5. ACTIQ [Suspect]
     Active Substance: FENTANYL CITRATE
     Indication: SPINAL OPERATION
  6. ACTIQ [Suspect]
     Active Substance: FENTANYL CITRATE
     Indication: GENERAL PHYSICAL HEALTH DETERIORATION
  7. CLONIDINE. [Concomitant]
     Active Substance: CLONIDINE

REACTIONS (3)
  - Product availability issue [Unknown]
  - Therapy interrupted [Unknown]
  - Pain [Unknown]

NARRATIVE: CASE EVENT DATE: 2020
